APPROVED DRUG PRODUCT: DICLOFENAC POTASSIUM
Active Ingredient: DICLOFENAC POTASSIUM
Strength: 25MG
Dosage Form/Route: TABLET;ORAL
Application: A075229 | Product #002 | TE Code: AB
Applicant: RUBICON RESEARCH LTD
Approved: Sep 16, 2021 | RLD: No | RS: No | Type: RX